FAERS Safety Report 4383309-X (Version None)
Quarter: 2004Q2

REPORT INFORMATION
  Report Type: 
  Country: None (occurrence: None)
  Receive Date: 20040618
  Receipt Date: 20040601
  Transmission Date: 20050107
  Serious: Yes (Hospitalization)
  Sender: FDA-Public Use
  Company Number: ATO-04-0541

PATIENT
  Age: 56 Year
  Sex: Female
  Weight: 138 kg

DRUGS (3)
  1. TRISENOX [Suspect]
     Indication: MULTIPLE MYELOMA
     Dosage: 4 CYCLES TO DATE. (17.5 MG, TWICE WEEKLY), IVI
     Route: 042
     Dates: end: 20040527
  2. MELPHALAN [Suspect]
     Indication: MULTIPLE MYELOMA
     Dosage: 17 MG (17 MG, X 4 DAYS Q 42 DAYS), ORAL
     Route: 048
  3. AREDIA [Concomitant]

REACTIONS (1)
  - DEHYDRATION [None]
